APPROVED DRUG PRODUCT: REQUIP
Active Ingredient: ROPINIROLE HYDROCHLORIDE
Strength: EQ 5MG BASE **Federal Register determination that product was not discontinued or withdrawn for safety or effectiveness reasons**
Dosage Form/Route: TABLET;ORAL
Application: N020658 | Product #005
Applicant: GLAXOSMITHKLINE LLC
Approved: Sep 19, 1997 | RLD: Yes | RS: No | Type: DISCN